FAERS Safety Report 11110629 (Version 1)
Quarter: 2015Q2

REPORT INFORMATION
  Report Type: Spontaneous
  Country: US (occurrence: US)
  Receive Date: 20150513
  Receipt Date: 20150513
  Transmission Date: 20150821
  Serious: No
  Sender: FDA-Public Use
  Company Number: US-JNJFOC-20150403047

PATIENT
  Sex: Male

DRUGS (1)
  1. INVEGA SUSTENNA [Suspect]
     Active Substance: PALIPERIDONE PALMITATE
     Indication: BIPOLAR I DISORDER
     Route: 030
     Dates: start: 201012, end: 20120823

REACTIONS (16)
  - Heart rate increased [Recovered/Resolved]
  - Apathy [Recovered/Resolved]
  - Nervousness [Not Recovered/Not Resolved]
  - Abnormal behaviour [Recovered/Resolved]
  - Inappropriate schedule of drug administration [Unknown]
  - Sensory disturbance [Recovered/Resolved]
  - Respiratory disorder [Recovered/Resolved]
  - Injury [Not Recovered/Not Resolved]
  - Abdominal pain upper [Recovered/Resolved]
  - Emotional distress [Recovered/Resolved]
  - Muscle rigidity [Recovered/Resolved]
  - Injection site pain [Recovered/Resolved]
  - Thinking abnormal [Recovered/Resolved]
  - Insomnia [Recovered/Resolved]
  - Hyperhidrosis [Recovered/Resolved]
  - Agitation [Recovered/Resolved]

NARRATIVE: CASE EVENT DATE: 2012
